FAERS Safety Report 7214357-X (Version None)
Quarter: 2011Q1

REPORT INFORMATION
  Report Type: 
  Country: None (occurrence: None)
  Receive Date: 20110107
  Receipt Date: 20101230
  Transmission Date: 20110831
  Serious: Yes (Hospitalization, Other)
  Sender: FDA-Public Use
  Company Number: NG-B.I. PHARMACEUTICALS,INC./RIDGEFIELD-2011-DE-00004GD

PATIENT
  Age: 31 Year
  Sex: Female

DRUGS (6)
  1. ZIDOVUDINE [Concomitant]
     Indication: HUMAN IMMUNODEFICIENCY VIRUS TRANSMISSION
  2. LAMIVUDINE [Concomitant]
     Indication: PROPHYLAXIS
  3. ZIDOVUDINE [Concomitant]
     Indication: PROPHYLAXIS
  4. NEVIRAPINE [Suspect]
     Indication: HUMAN IMMUNODEFICIENCY VIRUS TRANSMISSION
  5. NEVIRAPINE [Suspect]
     Indication: PROPHYLAXIS
  6. LAMIVUDINE [Concomitant]
     Indication: HUMAN IMMUNODEFICIENCY VIRUS TRANSMISSION

REACTIONS (2)
  - ABORTION THREATENED [None]
  - STEVENS-JOHNSON SYNDROME [None]
